FAERS Safety Report 4649474-1 (Version None)
Quarter: 2005Q2

REPORT INFORMATION
  Report Type: 
  Country: None (occurrence: None)
  Receive Date: 20050428
  Receipt Date: 20050428
  Transmission Date: 20051028
  Serious: Yes (Life-Threatening, Hospitalization)
  Sender: FDA-Public Use
  Company Number: None

PATIENT
  Sex: Female
  Weight: 108.8633 kg

DRUGS (12)
  1. RIFAMPIN [Suspect]
     Indication: SKIN BACTERIAL INFECTION
     Dosage: 300MG, ONE CAP BY MOUTH
     Route: 048
     Dates: start: 20041202, end: 20041203
  2. RIFAMPIN [Suspect]
     Indication: STAPHYLOCOCCAL INFECTION
     Dosage: 300MG, ONE CAP BY MOUTH
     Route: 048
     Dates: start: 20041202, end: 20041203
  3. PREMARIN [Concomitant]
  4. ALPRAZOLAM [Concomitant]
  5. HYDROXYZINE [Concomitant]
  6. LEVOTHROID [Concomitant]
  7. LISINOPRIL AND HYDROCHLOROTHIAZIDE [Concomitant]
  8. OMEPRAZOLE [Concomitant]
  9. VIOXX [Concomitant]
  10. THERAGRAN-M MULTIVITAMIN [Concomitant]
  11. ALEVE [Concomitant]
  12. TYLENOL (CAPLET) [Concomitant]

REACTIONS (15)
  - ANOREXIA [None]
  - CHEST PAIN [None]
  - CHILLS [None]
  - CONFUSIONAL STATE [None]
  - DIARRHOEA [None]
  - DIZZINESS [None]
  - DYSGEUSIA [None]
  - DYSPEPSIA [None]
  - HYPOAESTHESIA [None]
  - NAUSEA [None]
  - PYREXIA [None]
  - STOMACH DISCOMFORT [None]
  - SUICIDAL IDEATION [None]
  - VISION BLURRED [None]
  - VOMITING PROJECTILE [None]
